FAERS Safety Report 26178815 (Version 2)
Quarter: 2025Q4

REPORT INFORMATION
  Report Type: Report from Study
  Country: US (occurrence: US)
  Receive Date: 20251219
  Receipt Date: 20251231
  Transmission Date: 20260117
  Serious: Yes (Hospitalization)
  Sender: SANDOZ
  Company Number: US-INCYTE CORPORATION-2025IN013831

PATIENT
  Age: 66 Year
  Sex: Male
  Weight: 80 kg

DRUGS (12)
  1. TACROLIMUS [Suspect]
     Active Substance: TACROLIMUS
     Indication: Myelodysplastic syndrome
     Dosage: 1 MG, QD ORAL LIQUID
     Dates: start: 20250824
  2. TACROLIMUS [Suspect]
     Active Substance: TACROLIMUS
     Indication: Prophylaxis
  3. METHOTREXATE [Suspect]
     Active Substance: METHOTREXATE
     Indication: Myelodysplastic syndrome
     Dosage: 9.7 MG, QD INFUSION
     Dates: start: 20250829
  4. METHOTREXATE [Suspect]
     Active Substance: METHOTREXATE
     Indication: Prophylaxis
  5. RUXOLITINIB [Suspect]
     Active Substance: RUXOLITINIB
     Indication: Myelodysplastic syndrome
     Dosage: 5  MG, BID
     Dates: start: 20250826, end: 20251206
  6. RUXOLITINIB [Suspect]
     Active Substance: RUXOLITINIB
     Indication: Prophylaxis
  7. ACYCLOVIR [Concomitant]
     Active Substance: ACYCLOVIR
     Indication: Product used for unknown indication
     Dosage: 400 MG, BID
     Dates: start: 20251016
  8. AMLODIPINE [Concomitant]
     Active Substance: AMLODIPINE BESYLATE
     Indication: Product used for unknown indication
     Dosage: 2.5 MG, QD
     Dates: start: 20251016
  9. GABAPENTIN [Concomitant]
     Active Substance: GABAPENTIN
     Indication: Product used for unknown indication
     Dosage: 100 MG, QD
     Dates: start: 20251201
  10. OMEPRAZOLE [Concomitant]
     Active Substance: OMEPRAZOLE
     Indication: Product used for unknown indication
     Dosage: 20 MG, BID
  11. POSACONAZOLE [Concomitant]
     Active Substance: POSACONAZOLE
     Indication: Product used for unknown indication
     Dosage: 300 MG, QD
     Dates: start: 20251016
  12. PROCHLORPERAZINE [Concomitant]
     Active Substance: PROCHLORPERAZINE
     Indication: Product used for unknown indication
     Dosage: 40 MG, QD
     Dates: start: 20251202

REACTIONS (1)
  - Post transplant lymphoproliferative disorder [Not Recovered/Not Resolved]

NARRATIVE: CASE EVENT DATE: 20251204
